FAERS Safety Report 6787282-6 (Version None)
Quarter: 2010Q2

REPORT INFORMATION
  Report Type: 
  Country: None (occurrence: None)
  Receive Date: 20100621
  Receipt Date: 20100504
  Transmission Date: 20101027
  Serious: Yes (Death)
  Sender: FDA-Public Use
  Company Number: 009674

PATIENT
  Age: 89 Year
  Sex: Female

DRUGS (11)
  1. SAMSCA [Suspect]
     Indication: HYPONATRAEMIA
     Dosage: 15 MG, SINGLE, ORAL
     Route: 048
     Dates: start: 20100501, end: 20100501
  2. SAMSCA [Suspect]
     Indication: LUNG INFECTION
     Dosage: 15 MG, SINGLE, ORAL
     Route: 048
     Dates: start: 20100501, end: 20100501
  3. ALENDRONIC ACID (ALENDRONIC ACID) [Concomitant]
  4. CALCICHEW-D3 (CALCIUM CARBONATE, COLECALCIFEROL) [Concomitant]
  5. ASPIRIN [Concomitant]
  6. MIRTAZAPINE [Concomitant]
  7. FERROUS SULFATE TAB [Concomitant]
  8. RANITIDINE [Concomitant]
  9. AMOXICILLIN W CLAVULANIC ACID (AMOXICILLIN, CLAVULANIC ACID) [Concomitant]
  10. BETAHISTINE (BETAHISTINE) [Concomitant]
  11. SALMETEROL (SALMETEROL) [Concomitant]

REACTIONS (1)
  - LOWER RESPIRATORY TRACT INFECTION [None]
